FAERS Safety Report 8819551 (Version 2)
Quarter: 2012Q4

REPORT INFORMATION
  Report Type: 
  Country: US (occurrence: US)
  Receive Date: 20120930
  Receipt Date: 20121119
  Transmission Date: 20130627
  Serious: No
  Sender: FDA-Public Use
  Company Number: US-ROXANE LABORATORIES, INC.-2012-RO-01830RO

PATIENT
  Age: 75 Year
  Sex: Female
  Weight: 82 kg

DRUGS (13)
  1. LETROZOLE [Suspect]
     Indication: BREAST CANCER
     Dosage: 2.5 mg
     Route: 048
     Dates: start: 201206, end: 20121018
  2. TEMAZEPAM [Concomitant]
  3. MVI [Concomitant]
  4. LISINOPRIL [Concomitant]
     Dosage: 10 mg
  5. METFORMIN [Concomitant]
  6. ASPIRIN [Concomitant]
  7. CARVEDIL [Concomitant]
     Dosage: 50 mg
  8. TRAMADOL [Concomitant]
     Dosage: 50 mg
  9. PRAMIPEXOLE [Concomitant]
     Dosage: 5 mg
  10. SIMVASTATIN [Concomitant]
     Dosage: 40 mg
  11. RESTORIL [Concomitant]
     Dosage: 30 mg
  12. CYMBALTA [Concomitant]
     Dosage: 60 mg
  13. B12 [Concomitant]
     Dosage: 500 mcg

REACTIONS (2)
  - Hyperhidrosis [Not Recovered/Not Resolved]
  - Alopecia [Not Recovered/Not Resolved]
